FAERS Safety Report 11968596 (Version 1)
Quarter: 2016Q1

REPORT INFORMATION
  Report Type: Spontaneous
  Country: US (occurrence: US)
  Receive Date: 20160128
  Receipt Date: 20160128
  Transmission Date: 20160526
  Serious: No
  Sender: FDA-Public Use
  Company Number: US-JNJFOC-20160112741

PATIENT
  Age: 62 Year
  Sex: Female
  Weight: 56.25 kg

DRUGS (2)
  1. WOMENS ROGAINE UNSCENTED [Suspect]
     Active Substance: MINOXIDIL
     Indication: HAIR GROWTH ABNORMAL
     Dosage: HALF CAPFUL AMOUNT
     Route: 061
     Dates: start: 20160115, end: 20160115
  2. WOMENS ROGAINE UNSCENTED [Suspect]
     Active Substance: MINOXIDIL
     Route: 061

REACTIONS (2)
  - Drug administered at inappropriate site [Unknown]
  - Product quality issue [Unknown]

NARRATIVE: CASE EVENT DATE: 20160115
